FAERS Safety Report 20332598 (Version 1)
Quarter: 2022Q1

REPORT INFORMATION
  Report Type: Spontaneous
  Country: JP (occurrence: JP)
  Receive Date: 20220113
  Receipt Date: 20220113
  Transmission Date: 20220424
  Serious: Yes (Other)
  Sender: FDA-Public Use
  Company Number: JP-OTSUKA-2022_000886

PATIENT
  Age: 7 Decade
  Sex: Female

DRUGS (1)
  1. SAMSCA [Suspect]
     Active Substance: TOLVAPTAN
     Indication: Fluid retention
     Dosage: UNK
     Route: 065

REACTIONS (3)
  - Hepatitis E [Unknown]
  - Drug-induced liver injury [Unknown]
  - Hepatic function abnormal [Recovering/Resolving]
